FAERS Safety Report 6080017-4 (Version None)
Quarter: 2009Q1

REPORT INFORMATION
  Report Type: 
  Country: None (occurrence: None)
  Receive Date: 20090217
  Receipt Date: 20090206
  Transmission Date: 20090719
  Serious: Yes (Other)
  Sender: FDA-Public Use
  Company Number: US-AVENTIS-200910959US

PATIENT
  Sex: Male

DRUGS (3)
  1. LANTUS [Suspect]
     Dosage: DOSE: 30 U IN THE MORNING AND 38 U IN THE EVENING
     Route: 058
     Dates: start: 20080507
  2. LANTUS [Suspect]
     Dosage: DOSE: UNK DOSE USED FOR TESTING
     Route: 058
     Dates: start: 20080501
  3. NOVOLOG [Concomitant]
     Dosage: DOSE: UNK

REACTIONS (3)
  - CONVULSION [None]
  - MUSCULOSKELETAL CHEST PAIN [None]
  - URTICARIA [None]
